FAERS Safety Report 7507864-3 (Version None)
Quarter: 2011Q2

REPORT INFORMATION
  Report Type: 
  Country: None (occurrence: None)
  Receive Date: 20110527
  Receipt Date: 20110512
  Transmission Date: 20111010
  Serious: Yes (Other)
  Sender: FDA-Public Use
  Company Number: CS-RANBAXY-2011RR-44660

PATIENT

DRUGS (1)
  1. SIMVASTATIN [Suspect]

REACTIONS (2)
  - HEPATOTOXICITY [None]
  - HEPATIC ENZYME INCREASED [None]
